FAERS Safety Report 9235030 (Version 2)
Quarter: 2014Q1

REPORT INFORMATION
  Report Type: Spontaneous
  Country: IT (occurrence: IT)
  Receive Date: 20130416
  Receipt Date: 20140117
  Transmission Date: 20141002
  Serious: Yes (Hospitalization)
  Sender: FDA-Public Use
  Company Number: IT-PFIZER INC-2013115987

PATIENT
  Age: 50 Year
  Sex: Female

DRUGS (5)
  1. SALAZOPYRIN EN [Suspect]
     Indication: PSORIATIC ARTHROPATHY
     Dosage: 1500 MG, DAILY
     Route: 048
     Dates: start: 20130222, end: 20130308
  2. MEDROL [Concomitant]
  3. LOBIVON [Concomitant]
  4. TRIATEC [Concomitant]
  5. LAROXYL [Concomitant]

REACTIONS (3)
  - Hyperpyrexia [Recovered/Resolved]
  - Rash [Recovered/Resolved]
  - Transaminases increased [Recovered/Resolved]
